FAERS Safety Report 12498452 (Version 4)
Quarter: 2016Q3

REPORT INFORMATION
  Report Type: Spontaneous
  Country: US (occurrence: US)
  Receive Date: 20160627
  Receipt Date: 20160714
  Transmission Date: 20161109
  Serious: Yes (Other)
  Sender: FDA-Public Use
  Company Number: US-HORIZON-RAV-0113-2016

PATIENT
  Age: 21 Year
  Sex: Female
  Weight: 38 kg

DRUGS (4)
  1. CARNITINE [Concomitant]
     Active Substance: CARNITINE
  2. PROTEIN [Concomitant]
     Active Substance: PROTEIN
     Dosage: 30-40 G DAILY
  3. RAVICTI [Suspect]
     Active Substance: GLYCEROL PHENYLBUTYRATE
     Indication: ORNITHINE TRANSCARBAMOYLASE DEFICIENCY
     Dosage: 2.5ML, 2.5ML, 3ML, TOTAL OF 8ML/D
     Dates: start: 20160314
  4. CITRULLINE [Concomitant]
     Active Substance: CITRULLINE

REACTIONS (8)
  - Somnolence [Unknown]
  - Weight decreased [Unknown]
  - Decreased appetite [Unknown]
  - Cognitive disorder [Unknown]
  - Pallor [Unknown]
  - Intentional product use issue [Unknown]
  - Irritability [Unknown]
  - Dizziness [Unknown]
